FAERS Safety Report 6288446-0 (Version None)
Quarter: 2009Q3

REPORT INFORMATION
  Report Type: 
  Country: None (occurrence: None)
  Receive Date: 20090729
  Receipt Date: 20090722
  Transmission Date: 20100115
  Serious: Yes (Hospitalization)
  Sender: FDA-Public Use
  Company Number: A0799148A

PATIENT
  Sex: Female
  Weight: 72 kg

DRUGS (7)
  1. SERETIDE [Suspect]
     Indication: CHRONIC OBSTRUCTIVE PULMONARY DISEASE
     Dosage: 1PUFF TWICE PER DAY
     Route: 055
     Dates: start: 20050101
  2. CORTISONE [Concomitant]
     Dosage: 5MG PER DAY
     Dates: start: 19600101
  3. MODURETIC 5-50 [Concomitant]
     Dosage: 50MG PER DAY
  4. DILACORON [Concomitant]
     Dosage: 120MG TWICE PER DAY
  5. PAMELOR [Concomitant]
     Dosage: 50MG PER DAY
  6. LANOXIN [Concomitant]
  7. RITMONORM [Concomitant]

REACTIONS (3)
  - LUNG INFECTION [None]
  - OVERDOSE [None]
  - RESPIRATORY DISORDER [None]
